FAERS Safety Report 18332125 (Version 1)
Quarter: 2020Q3

REPORT INFORMATION
  Report Type: Spontaneous
  Country: IN (occurrence: RS)
  Receive Date: 20200930
  Receipt Date: 20200930
  Transmission Date: 20201103
  Serious: Yes (Life-Threatening, Hospitalization, Other)
  Sender: FDA-Public Use
  Company Number: RS-ELI_LILLY_AND_COMPANY-RS202009011513

PATIENT
  Age: 55 Year
  Sex: Male

DRUGS (1)
  1. OLANZAPINE. [Suspect]
     Active Substance: OLANZAPINE
     Indication: PSYCHOTIC DISORDER
     Dosage: 350 MG, UNKNOWN
     Route: 048

REACTIONS (9)
  - Myopathy [Recovered/Resolved]
  - Agranulocytosis [Recovered/Resolved]
  - Toxicity to various agents [Recovered/Resolved]
  - Overdose [Recovered/Resolved]
  - Agitation [Recovered/Resolved]
  - Febrile neutropenia [Recovered/Resolved]
  - Respiratory failure [Recovered/Resolved]
  - Drug level increased [Recovered/Resolved]
  - Mental status changes [Recovered/Resolved]
